FAERS Safety Report 6017654-9 (Version None)
Quarter: 2008Q4

REPORT INFORMATION
  Report Type: 
  Country: None (occurrence: None)
  Receive Date: 20081223
  Receipt Date: 20081216
  Transmission Date: 20090506
  Serious: Yes (Death)
  Sender: FDA-Public Use
  Company Number: JP-WYE-H07336908

PATIENT
  Age: 81 Year
  Sex: Female

DRUGS (2)
  1. ZOSYN [Suspect]
     Indication: PYELONEPHRITIS
     Dates: start: 20081126, end: 20081130
  2. WARFARIN POTASSIUM [Concomitant]
     Indication: ANTICOAGULANT THERAPY
     Route: 048
     Dates: start: 20060101

REACTIONS (1)
  - SUBARACHNOID HAEMORRHAGE [None]
